FAERS Safety Report 9525040 (Version 1)
Quarter: 2013Q1

REPORT INFORMATION
  Report Type: Spontaneous
  Country: US (occurrence: None)
  Receive Date: 20130314
  Receipt Date: 20130314
  Transmission Date: 20140127
  Serious: No
  Sender: FDA-Public Use
  Company Number: 1301USA005245

PATIENT
  Age: 59 Year
  Sex: Male

DRUGS (4)
  1. VICTRELIS (BOCEPREVIR) CAPSULE [Suspect]
     Dosage: 4 DF, TID, ORAL
     Route: 048
  2. RIBAVIRIN (RIBAVIRIN) TABLET, 200 MG [Suspect]
     Dosage: ORAL
     Route: 048
  3. PEGASYS (PEGINTERFERON ALFA-2A) [Suspect]
  4. VITAMINS (UNSPECIFIED) (VITAMINS (UNSPECIFIED) [Concomitant]

REACTIONS (1)
  - Discomfort [None]
